FAERS Safety Report 6703720-9 (Version None)
Quarter: 2010Q2

REPORT INFORMATION
  Report Type: 
  Country: None (occurrence: None)
  Receive Date: 20100430
  Receipt Date: 20100412
  Transmission Date: 20101027
  Serious: Yes (Other)
  Sender: FDA-Public Use
  Company Number: US-BAYER-200832040NA

PATIENT
  Age: 46 Year
  Sex: Female
  Weight: 88 kg

DRUGS (2)
  1. CAMPATH [Suspect]
     Indication: RENAL TRANSPLANT
     Dosage: 2 DOSES GIVEN: DURING KIDNEY TRANSPLANT AND AGAIN ON DAY +1
     Dates: start: 20040919
  2. CAMPATH [Suspect]
     Dosage: DAY AFTER TRANSPLANT
     Dates: start: 20040920

REACTIONS (7)
  - ANXIETY [None]
  - CYTOMEGALOVIRUS INFECTION [None]
  - HEART RATE INCREASED [None]
  - HEPATIC ENZYME INCREASED [None]
  - HEPATITIS C [None]
  - PLATELET COUNT DECREASED [None]
  - SPLENOMEGALY [None]
